FAERS Safety Report 8828624 (Version 1)
Quarter: 2012Q4

REPORT INFORMATION
  Report Type: 
  Country: US (occurrence: US)
  Receive Date: 20121005
  Receipt Date: 20121005
  Transmission Date: 20130627
  Serious: Yes (Hospitalization)
  Sender: FDA-Public Use
  Company Number: US-AMGEN-USASP2012040633

PATIENT
  Age: 30 Year
  Sex: Female

DRUGS (6)
  1. NEULASTA [Suspect]
     Indication: NEUTROPENIA
     Dosage: 6 mg, q3wk
     Dates: start: 200606
  2. VENTOLIN [Concomitant]
     Dosage: UNK
  3. VICODIN [Concomitant]
     Dosage: UNK UNK, prn
     Dates: start: 1983
  4. PRENATAL VITAMINS                  /02014401/ [Concomitant]
     Dosage: UNK UNK, qd
     Dates: start: 20100819
  5. MOTRIN [Concomitant]
     Dosage: UNK UNK, prn
  6. ALBUTEROL                          /00139501/ [Concomitant]
     Indication: ASTHMA
     Dosage: UNK UNK, prn

REACTIONS (5)
  - Infection [Unknown]
  - Arthralgia [Recovering/Resolving]
  - Alopecia [Recovering/Resolving]
  - Neutropenia [Not Recovered/Not Resolved]
  - Bone pain [Recovering/Resolving]
